FAERS Safety Report 7091251-9 (Version None)
Quarter: 2010Q4

REPORT INFORMATION
  Report Type: 
  Country: None (occurrence: None)
  Receive Date: 20101109
  Receipt Date: 20101101
  Transmission Date: 20110411
  Serious: Yes (Life-Threatening, Hospitalization)
  Sender: FDA-Public Use
  Company Number: B0682139A

PATIENT
  Age: 48 Year
  Sex: Female
  Weight: 78 kg

DRUGS (2)
  1. ORLISTAT [Suspect]
     Route: 048
     Dates: start: 20100730, end: 20100820
  2. DICLOFENAC SODIUM [Concomitant]
     Dosage: 150MG PER DAY
     Route: 048
     Dates: start: 20100514, end: 20100601

REACTIONS (1)
  - PANCREATITIS [None]
